FAERS Safety Report 7007616-7 (Version None)
Quarter: 2010Q3

REPORT INFORMATION
  Report Type: 
  Country: None (occurrence: None)
  Receive Date: 20100922
  Receipt Date: 20100916
  Transmission Date: 20110219
  Serious: Yes (Other)
  Sender: FDA-Public Use
  Company Number: FR-AMGEN-KDL393255

PATIENT
  Age: 50 Year
  Sex: Male

DRUGS (1)
  1. VECTIBIX [Suspect]
     Indication: PRODUCT USED FOR UNKNOWN INDICATION

REACTIONS (6)
  - HEPATIC INFECTION [None]
  - HYPOPHAGIA [None]
  - MUCOSAL INFLAMMATION [None]
  - PAIN [None]
  - PHARYNGEAL LESION [None]
  - SKIN REACTION [None]
